FAERS Safety Report 26074780 (Version 1)
Quarter: 2025Q4

REPORT INFORMATION
  Report Type: Spontaneous
  Country: US (occurrence: US)
  Receive Date: 20251121
  Receipt Date: 20251121
  Transmission Date: 20260118
  Serious: Yes (Hospitalization)
  Sender: MERCK SHARP & DOHME LLC
  Company Number: US-009507513-2349575

PATIENT

DRUGS (1)
  1. KEYTRUDA [Suspect]
     Active Substance: PEMBROLIZUMAB
     Indication: Neoplasm malignant
     Route: 065

REACTIONS (5)
  - Immune-mediated adrenal insufficiency [Unknown]
  - Hypertension [Unknown]
  - Electrolyte depletion [Unknown]
  - Immunosuppression [Unknown]
  - Renal disorder [Unknown]
